FAERS Safety Report 4442678-2 (Version None)
Quarter: 2004Q3

REPORT INFORMATION
  Report Type: 
  Country: None (occurrence: None)
  Receive Date: 20040903
  Receipt Date: 20040618
  Transmission Date: 20050211
  Serious: Yes (Other)
  Sender: FDA-Public Use
  Company Number: 2004UW12758

PATIENT
  Age: 80 Year
  Sex: Female
  Weight: 63.5036 kg

DRUGS (13)
  1. CRESTOR [Suspect]
     Indication: BLOOD CHOLESTEROL INCREASED
     Dosage: 10 MG PO
     Route: 048
  2. LISINOPRIL [Concomitant]
  3. DIGOXIN [Concomitant]
  4. NORVASC [Concomitant]
  5. ALLEGRA [Concomitant]
  6. ACETYLSALICYLIC ACID [Concomitant]
  7. MULTI-VITAMINS [Concomitant]
  8. LECITHIN [Concomitant]
  9. FISH OIL [Concomitant]
  10. FORTEO [Concomitant]
  11. MIACALCIN [Concomitant]
  12. VITAMIN C [Concomitant]
  13. VITAMIN E [Concomitant]

REACTIONS (2)
  - CREATININE URINE INCREASED [None]
  - RENAL IMPAIRMENT [None]
